FAERS Safety Report 6232631-0 (Version None)
Quarter: 2009Q2

REPORT INFORMATION
  Report Type: 
  Country: None (occurrence: None)
  Receive Date: 20090615
  Receipt Date: 20090615
  Transmission Date: 20091009
  Serious: No
  Sender: FDA-Public Use
  Company Number: None

PATIENT
  Age: 32 Year
  Sex: Female

DRUGS (4)
  1. TOPIRAMATE [Suspect]
     Indication: CONVULSION
     Dosage: 300 MG Q.D. PO
     Route: 048
     Dates: start: 20081119
  2. OXCARBAZEPINE [Concomitant]
  3. CALCIUM VIT/D [Concomitant]
  4. LACTULOSE [Concomitant]

REACTIONS (1)
  - METABOLIC ACIDOSIS [None]
